FAERS Safety Report 19302985 (Version 2)
Quarter: 2021Q2

REPORT INFORMATION
  Report Type: Spontaneous
  Country: US (occurrence: US)
  Receive Date: 20210525
  Receipt Date: 20210528
  Transmission Date: 20210717
  Serious: No
  Sender: FDA-Public Use
  Company Number: US-PFIZER INC-2021236744

PATIENT
  Age: 38 Year
  Sex: Male
  Weight: 107.05 kg

DRUGS (3)
  1. CHANTIX [Suspect]
     Active Substance: VARENICLINE TARTRATE
     Indication: SMOKING CESSATION THERAPY
     Dosage: 1 MG, TWICE A DAY
     Route: 048
  2. TOPIRAMATE. [Concomitant]
     Active Substance: TOPIRAMATE
     Indication: SEIZURE
     Dosage: 150 MG, DAILY (50MG IN THE MORNING AND 100MG AT NIGHT )
  3. CHANTIX [Suspect]
     Active Substance: VARENICLINE TARTRATE
     Indication: MENTAL DISORDER

REACTIONS (1)
  - Abnormal dreams [Unknown]
